FAERS Safety Report 12721917 (Version 1)
Quarter: 2016Q3

REPORT INFORMATION
  Report Type: Spontaneous
  Country: US (occurrence: US)
  Receive Date: 20160907
  Receipt Date: 20160907
  Transmission Date: 20161109
  Serious: No
  Sender: FDA-Public Use
  Company Number: US-MYLANLABS-2016M1033254

PATIENT
  Sex: Male

DRUGS (1)
  1. GLIPIZIDE EXTENDED-RELEASE TABLETS [Suspect]
     Active Substance: GLIPIZIDE
     Dosage: 10 MG, BID
     Route: 048

REACTIONS (2)
  - Drug ineffective [Not Recovered/Not Resolved]
  - Medication residue present [Not Recovered/Not Resolved]

NARRATIVE: CASE EVENT DATE: 2016
